FAERS Safety Report 6237005-4 (Version None)
Quarter: 2009Q2

REPORT INFORMATION
  Report Type: 
  Country: None (occurrence: None)
  Receive Date: 20090619
  Receipt Date: 20090319
  Transmission Date: 20091009
  Serious: No
  Sender: FDA-Public Use
  Company Number: US-ASTRAZENECA-2009UW07103

PATIENT
  Sex: Female

DRUGS (1)
  1. SYMBICORT [Suspect]
     Dosage: 1 PUFF
     Route: 055

REACTIONS (4)
  - COUGH [None]
  - INCORRECT DOSE ADMINISTERED [None]
  - OROPHARYNGEAL PAIN [None]
  - SENSATION OF FOREIGN BODY [None]
